FAERS Safety Report 13779101 (Version 1)
Quarter: 2017Q3

REPORT INFORMATION
  Report Type: Spontaneous
  Country: US (occurrence: US)
  Receive Date: 20170721
  Receipt Date: 20170721
  Transmission Date: 20171127
  Serious: No
  Sender: FDA-Public Use
  Company Number: US-PFIZER INC-2017314571

PATIENT
  Age: 73 Year
  Sex: Female

DRUGS (3)
  1. REVLIMID [Suspect]
     Active Substance: LENALIDOMIDE
     Indication: PLASMA CELL MYELOMA
     Dosage: 15 MG, CYCLIC (21 IN 28 D)
     Route: 048
     Dates: start: 20130515
  2. REVLIMID [Suspect]
     Active Substance: LENALIDOMIDE
     Dosage: 10 MG, DAILY
     Route: 048
     Dates: start: 201702
  3. ZITHROMAX [Suspect]
     Active Substance: AZITHROMYCIN DIHYDRATE
     Indication: URINARY TRACT INFECTION
     Dosage: UNK

REACTIONS (2)
  - Rash [Unknown]
  - Genital blister [Unknown]

NARRATIVE: CASE EVENT DATE: 2013
